FAERS Safety Report 4867971-0 (Version None)
Quarter: 2005Q4

REPORT INFORMATION
  Report Type: 
  Country: None (occurrence: None)
  Receive Date: 20051227
  Receipt Date: 20051216
  Transmission Date: 20060501
  Serious: Yes (Other)
  Sender: FDA-Public Use
  Company Number: FR-JNJFOC-20050402219

PATIENT
  Age: 37 Year
  Sex: Female

DRUGS (10)
  1. RISPERDAL [Suspect]
     Indication: SCHIZOPHRENIA
     Dosage: SEE IMAGE
     Route: 030
     Dates: start: 20050113, end: 20050324
  2. RISPERDAL [Suspect]
     Indication: SCHIZOPHRENIA
     Dosage: SEE IMAGE
     Route: 030
     Dates: start: 20041008
  3. RISPERIDONE [Suspect]
     Indication: SCHIZOPHRENIA
     Dosage: SEE IMAGE
     Route: 048
     Dates: start: 20040920, end: 20041027
  4. RISPERIDONE [Suspect]
     Indication: SCHIZOPHRENIA
     Dosage: SEE IMAGE
     Route: 048
     Dates: start: 20050415
  5. INSULIN ACTRAPID (INSULIN) INJECTION [Concomitant]
  6. INSULIN MIXTYARD (INSULIN INJECTION, ISOPHANE) [Concomitant]
  7. INSULIN HUMALOG (INSULIN) INJECTION [Concomitant]
  8. INSULIN LANTUS (INSULIN) [Concomitant]
  9. DIAMICRON (GLICLAZIDE) TABLET [Concomitant]
  10. . [Concomitant]

REACTIONS (3)
  - ABORTION SPONTANEOUS [None]
  - DRUG EXPOSURE DURING PREGNANCY [None]
  - PREGNANCY [None]
